FAERS Safety Report 20949836 (Version 1)
Quarter: 2022Q2

REPORT INFORMATION
  Report Type: Spontaneous
  Country: JP (occurrence: JP)
  Receive Date: 20220613
  Receipt Date: 20220613
  Transmission Date: 20220721
  Serious: Yes (Other)
  Sender: FDA-Public Use
  Company Number: JP-CHUGAI-2022021176AA

PATIENT
  Age: 60 Year
  Sex: Male

DRUGS (1)
  1. ACTEMRA [Suspect]
     Active Substance: TOCILIZUMAB
     Indication: Rheumatoid vasculitis
     Dosage: 162 MILLIGRAM, ONCE/2-3WEEKS
     Route: 058

REACTIONS (2)
  - Spinal operation [Unknown]
  - Off label use [Unknown]
